FAERS Safety Report 5936691-3 (Version None)
Quarter: 2008Q4

REPORT INFORMATION
  Report Type: 
  Country: None (occurrence: None)
  Receive Date: 20081030
  Receipt Date: 20081015
  Transmission Date: 20090506
  Serious: Yes (Death)
  Sender: FDA-Public Use
  Company Number: JP-GENENTECH-253568

PATIENT
  Sex: Male
  Weight: 49 kg

DRUGS (5)
  1. BEVACIZUMAB [Suspect]
     Indication: RECTAL CANCER RECURRENT
     Dosage: 250 MG, QD
     Route: 041
     Dates: start: 20070717, end: 20071023
  2. OXALIPLATIN [Suspect]
     Indication: RECTAL CANCER RECURRENT
     Dosage: 115 MG, UNK
     Route: 041
     Dates: start: 20070206, end: 20071023
  3. FLUOROURACIL [Suspect]
     Indication: RECTAL CANCER RECURRENT
     Dosage: 3250 MG, UNK
     Route: 041
     Dates: start: 20070206, end: 20071024
  4. ISOVORIN [Suspect]
     Indication: RECTAL CANCER RECURRENT
     Dosage: 250 MG, UNK
     Route: 041
     Dates: start: 20070206, end: 20071023
  5. PURSENNID [Concomitant]
     Indication: DRUG USE FOR UNKNOWN INDICATION
     Dates: start: 20070510

REACTIONS (1)
  - GASTROINTESTINAL NECROSIS [None]
